FAERS Safety Report 9350870 (Version 1)
Quarter: 2013Q2

REPORT INFORMATION
  Report Type: Spontaneous
  Country: US (occurrence: US)
  Receive Date: 20130617
  Receipt Date: 20130617
  Transmission Date: 20140414
  Serious: No
  Sender: FDA-Public Use
  Company Number: US-BAYER-2013-073880

PATIENT
  Sex: 0

DRUGS (6)
  1. ALEVE CAPLET [Suspect]
     Indication: BACK PAIN
  2. ADVIL [Concomitant]
     Indication: BACK PAIN
  3. IBUPROFEN [Concomitant]
     Indication: BACK PAIN
  4. MOTRIN [Concomitant]
     Indication: BACK PAIN
  5. TYLENOL [PARACETAMOL] [Concomitant]
     Indication: BACK PAIN
  6. EXCEDRIN [CAFFEINE,PARACETAMOL] [Concomitant]
     Indication: BACK PAIN

REACTIONS (1)
  - Drug ineffective [None]
